FAERS Safety Report 11523616 (Version 1)
Quarter: 2015Q3

REPORT INFORMATION
  Report Type: Spontaneous
  Country: US (occurrence: US)
  Receive Date: 20150903
  Receipt Date: 20150903
  Transmission Date: 20151125
  Serious: Yes (Hospitalization, Other)
  Sender: FDA-Public Use
  Company Number: US-ELI_LILLY_AND_COMPANY-US201303004869

PATIENT
  Sex: Male

DRUGS (4)
  1. SEROQUEL [Concomitant]
     Active Substance: QUETIAPINE FUMARATE
  2. CYMBALTA [Suspect]
     Active Substance: DULOXETINE HYDROCHLORIDE
     Indication: MAJOR DEPRESSION
     Dosage: UNK, BID
  3. ABILIFY [Concomitant]
     Active Substance: ARIPIPRAZOLE
  4. ULTRAM [Interacting]
     Active Substance: TRAMADOL HYDROCHLORIDE

REACTIONS (3)
  - Suicidal ideation [Unknown]
  - Serotonin syndrome [Unknown]
  - Drug interaction [Unknown]
